FAERS Safety Report 9251994 (Version 1)
Quarter: 2013Q2

REPORT INFORMATION
  Report Type: Spontaneous
  Country: US (occurrence: US)
  Receive Date: 20130424
  Receipt Date: 20130424
  Transmission Date: 20140414
  Serious: No
  Sender: FDA-Public Use
  Company Number: US-PFIZER INC-2013125310

PATIENT
  Age: 75 Year
  Sex: Female
  Weight: 90.7 kg

DRUGS (6)
  1. ADVIL [Suspect]
     Indication: PAIN
     Dosage: 400 MG, AS NEEDED
     Route: 048
  2. PRILOSEC [Concomitant]
     Dosage: UNK, ONCE A DAY
  3. BENICAR HCT [Concomitant]
     Dosage: UNK
  4. CLONAZEPAM [Concomitant]
     Dosage: 1 MG, UNK
  5. DILTIAZEM [Concomitant]
     Indication: HYPERTENSION
     Dosage: 240 MG, ONCE A DAY
  6. VITAMIN D [Concomitant]
     Dosage: 2000 UNITS, UNK

REACTIONS (3)
  - Arthritis [Unknown]
  - Hot flush [Recovered/Resolved]
  - Feeling hot [Recovered/Resolved]
